FAERS Safety Report 6823170-4 (Version None)
Quarter: 2010Q3

REPORT INFORMATION
  Report Type: 
  Country: None (occurrence: None)
  Receive Date: 20100708
  Receipt Date: 20100625
  Transmission Date: 20110219
  Serious: Yes (Hospitalization)
  Sender: FDA-Public Use
  Company Number: TH-WATSON-2010-08819

PATIENT
  Age: 66 Year
  Sex: Female

DRUGS (2)
  1. ALENDRONATE SODIUM [Suspect]
     Indication: OSTEOPOROSIS POSTMENOPAUSAL
     Dosage: 10 MG, DAILY
     Route: 048
     Dates: start: 19980101, end: 20070101
  2. IBANDRONATE SODIUM [Suspect]
     Indication: OSTEOPOROSIS POSTMENOPAUSAL
     Dosage: UNK
     Dates: start: 20070101, end: 20081201

REACTIONS (1)
  - FEMUR FRACTURE [None]
